FAERS Safety Report 4321338-2 (Version None)
Quarter: 2004Q1

REPORT INFORMATION
  Report Type: 
  Country: None (occurrence: None)
  Receive Date: 20040322
  Receipt Date: 20030115
  Transmission Date: 20041129
  Serious: No
  Sender: FDA-Public Use
  Company Number: US-BRISTOL-MYERS SQUIBB COMPANY-12225207

PATIENT
  Age: 78 Year
  Sex: Female

DRUGS (8)
  1. MONISTAT [Suspect]
     Indication: VAGINAL MYCOSIS
     Route: 067
     Dates: start: 20030114, end: 20030114
  2. HYPERTENSION MEDICATION [Concomitant]
     Indication: HYPERTENSION
  3. ZOCOR [Concomitant]
  4. ARTHRITIS MEDICATION [Concomitant]
     Indication: ARTHRALGIA
  5. ASPIRIN [Concomitant]
  6. VITAMIN CAP [Concomitant]
  7. ZOLOFT [Concomitant]
  8. ORAL HYPOGLYCEMIC AGENTS [Concomitant]

REACTIONS (1)
  - VAGINAL BURNING SENSATION [None]
